FAERS Safety Report 9290267 (Version 1)
Quarter: 2013Q2

REPORT INFORMATION
  Report Type: Spontaneous
  Country: US (occurrence: US)
  Receive Date: 20130515
  Receipt Date: 20130515
  Transmission Date: 20140414
  Serious: No
  Sender: FDA-Public Use
  Company Number: US-OPTIMER PHARMACEUTICALS, INC.-20120056

PATIENT
  Sex: Female
  Weight: 72.56 kg

DRUGS (4)
  1. DIFICID [Suspect]
     Indication: CLOSTRIDIUM DIFFICILE COLITIS
     Dosage: 200 MG, BID
     Route: 048
     Dates: start: 20110812, end: 201108
  2. CORGARD [Concomitant]
     Indication: ARRHYTHMIA
     Dosage: UNK, QD
     Route: 048
  3. COZAAR [Concomitant]
     Indication: HYPERTENSION
     Dosage: UNK, QD
     Route: 048
  4. TRAMADOL [Concomitant]
     Indication: ABDOMINAL PAIN
     Dosage: UNK
     Route: 048
     Dates: start: 2010

REACTIONS (8)
  - Clostridium difficile colitis [Unknown]
  - Disease recurrence [Unknown]
  - Diarrhoea [Recovering/Resolving]
  - Abdominal pain [Recovering/Resolving]
  - Nausea [Recovering/Resolving]
  - Vomiting [Recovered/Resolved]
  - Fungal infection [Recovered/Resolved]
  - Drug ineffective [Unknown]
